FAERS Safety Report 18901274 (Version 2)
Quarter: 2021Q1

REPORT INFORMATION
  Report Type: Report from Study
  Country: US (occurrence: US)
  Receive Date: 20210217
  Receipt Date: 20210301
  Transmission Date: 20210420
  Serious: No
  Sender: FDA-Public Use
  Company Number: US-BRISTOL-MYERS SQUIBB COMPANY-BMS-2021-015838

PATIENT
  Age: 70 Year
  Sex: Male
  Weight: 100.69 kg

DRUGS (3)
  1. WARFARIN SODIUM. [Suspect]
     Active Substance: WARFARIN SODIUM
     Indication: PULMONARY EMBOLISM
     Dosage: LEVEL 14? 7 MG THREE DAYS A WEEK AND 5 MG FOUR DAYS A WEEK
     Route: 048
     Dates: start: 201303
  2. WARFARIN SODIUM. [Suspect]
     Active Substance: WARFARIN SODIUM
     Indication: DEEP VEIN THROMBOSIS
  3. WARFARIN SODIUM. [Suspect]
     Active Substance: WARFARIN SODIUM
     Indication: COAGULATION FACTOR V LEVEL ABNORMAL

REACTIONS (1)
  - Dental caries [Unknown]

NARRATIVE: CASE EVENT DATE: 20210208
